FAERS Safety Report 5976383-8 (Version None)
Quarter: 2008Q4

REPORT INFORMATION
  Report Type: 
  Country: None (occurrence: None)
  Receive Date: 20081202
  Receipt Date: 20081125
  Transmission Date: 20090506
  Serious: Yes (Death)
  Sender: FDA-Public Use
  Company Number: GB-B.I. PHARMACEUTICALS,INC./RIDGEFIELD-2008-UK-01809UK

PATIENT
  Age: 38 Year
  Sex: Male

DRUGS (1)
  1. TIPRANAVIR+RITONAVIR CO-ADMIN (EU/1/05/315/001) [Suspect]
     Indication: HIV INFECTION

REACTIONS (1)
  - HEPATITIS C [None]
